FAERS Safety Report 7124598-8 (Version None)
Quarter: 2010Q4

REPORT INFORMATION
  Report Type: 
  Country: None (occurrence: None)
  Receive Date: 20101122
  Receipt Date: 20101122
  Transmission Date: 20110411
  Serious: No
  Sender: FDA-Public Use
  Company Number: None

PATIENT
  Sex: Female
  Weight: 83.9154 kg

DRUGS (1)
  1. LISINOPRIL [Suspect]
     Dosage: 10MG ONE A DAY

REACTIONS (5)
  - COUGH [None]
  - DIZZINESS [None]
  - DRY THROAT [None]
  - HEADACHE [None]
  - INSOMNIA [None]
